FAERS Safety Report 10188580 (Version 1)
Quarter: 2014Q2

REPORT INFORMATION
  Report Type: Spontaneous
  Country: GB (occurrence: GB)
  Receive Date: 20140522
  Receipt Date: 20140522
  Transmission Date: 20141212
  Serious: Yes (Other)
  Sender: FDA-Public Use
  Company Number: GB-IPSEN BIOPHARMACEUTICALS, INC.-2014-2479

PATIENT
  Age: 45 Year
  Sex: Female
  Weight: 54.4 kg

DRUGS (5)
  1. AZZALURE [Suspect]
     Indication: SKIN WRINKLING
     Dosage: 130 IU
     Route: 065
     Dates: start: 20131202, end: 20131202
  2. AZZALURE [Suspect]
     Indication: SKIN WRINKLING
     Dosage: 130 IU
     Route: 065
     Dates: start: 20140307, end: 20140307
  3. AZZALURE [Suspect]
     Indication: SKIN WRINKLING
  4. AZZALURE [Suspect]
     Indication: OFF LABEL USE
  5. LANSOPRAZOLE [Concomitant]
     Indication: PRODUCT USED FOR UNKNOWN INDICATION
     Dosage: NOT REPORTED
     Route: 065

REACTIONS (3)
  - Abnormal loss of weight [Unknown]
  - Dysphagia [Not Recovered/Not Resolved]
  - Overdose [Unknown]
